FAERS Safety Report 23598936 (Version 1)
Quarter: 2024Q1

REPORT INFORMATION
  Report Type: Spontaneous
  Country: RU (occurrence: RU)
  Receive Date: 20240306
  Receipt Date: 20240306
  Transmission Date: 20240410
  Serious: Yes (Congenital Anomaly)
  Sender: FDA-Public Use
  Company Number: RU-CHEPLA-2024002708

PATIENT
  Sex: Female

DRUGS (1)
  1. HYDROXYUREA [Suspect]
     Active Substance: HYDROXYUREA
     Route: 064

REACTIONS (2)
  - Gastric haemangioma [Unknown]
  - Foetal exposure during pregnancy [Recovered/Resolved]
